FAERS Safety Report 9173644 (Version 2)
Quarter: 2013Q1

REPORT INFORMATION
  Report Type: Spontaneous
  Country: IT (occurrence: None)
  Receive Date: 20130314
  Receipt Date: 20130326
  Transmission Date: 20140127
  Serious: Yes (Hospitalization)
  Sender: FDA-Public Use
  Company Number: 2013AP003606

PATIENT
  Age: 82 Year
  Sex: Female

DRUGS (7)
  1. LEVOFLOXACIN [Suspect]
     Indication: URINARY TRACT INFECTION
     Route: 048
     Dates: start: 20130207, end: 20130214
  2. LOBIVON [Concomitant]
  3. ZANEDIP (LERCANIDIPINE HYDROCHLORIDE) [Concomitant]
  4. CATAPRESAN/00171101/ (CLONIDINE) [Concomitant]
  5. AKINETON/00079501/(BIPERIDEN) [Concomitant]
  6. CARDIO ASPIRIN (ACETYLSALICYCLIC ACID) [Concomitant]
  7. RIVOTRIL (CLONAZEPAM) [Concomitant]

REACTIONS (5)
  - Confusional state [None]
  - Disorientation [None]
  - Gait disturbance [None]
  - Condition aggravated [None]
  - Tenosynovitis [None]
